FAERS Safety Report 14045313 (Version 2)
Quarter: 2017Q4

REPORT INFORMATION
  Report Type: Spontaneous
  Country: DE (occurrence: DE)
  Receive Date: 20171005
  Receipt Date: 20171107
  Transmission Date: 20180321
  Serious: Yes (Hospitalization)
  Sender: FDA-Public Use
  Company Number: DE-ROCHE-2000015

PATIENT
  Age: 43 Year
  Sex: Female
  Weight: 120 kg

DRUGS (7)
  1. HERCEPTIN [Suspect]
     Active Substance: TRASTUZUMAB
     Indication: BREAST CANCER
     Route: 042
     Dates: start: 201706
  2. ONDANSETRON [Concomitant]
     Active Substance: ONDANSETRON
     Route: 065
  3. PERJETA [Suspect]
     Active Substance: PERTUZUMAB
     Indication: BREAST CANCER
     Route: 042
     Dates: start: 201706
  4. DEXAMETHASON [Concomitant]
     Active Substance: DEXAMETHASONE
     Indication: PREMEDICATION
     Route: 065
  5. PACLITAXEL. [Suspect]
     Active Substance: PACLITAXEL
     Indication: BREAST CANCER
     Dosage: 12 CYCLES
     Route: 042
     Dates: start: 201706
  6. GRIPPOSTAD (GERMANY) [Concomitant]
     Indication: RESPIRATORY TRACT INFECTION
  7. TARDYFERON (GERMANY) [Concomitant]
     Indication: HAEMOGLOBIN DECREASED

REACTIONS (5)
  - Acute kidney injury [Recovered/Resolved]
  - Respiratory tract infection [Unknown]
  - Ill-defined disorder [Unknown]
  - Diarrhoea [Recovered/Resolved]
  - Mental disorder [Unknown]

NARRATIVE: CASE EVENT DATE: 20170724
